FAERS Safety Report 7568869-X (Version None)
Quarter: 2011Q2

REPORT INFORMATION
  Report Type: 
  Country: None (occurrence: None)
  Receive Date: 20110623
  Receipt Date: 20110621
  Transmission Date: 20111010
  Serious: Yes (Other)
  Sender: FDA-Public Use
  Company Number: US-PFIZER INC-2011138161

PATIENT
  Sex: Male
  Weight: 94.3 kg

DRUGS (12)
  1. ZYPREXA [Concomitant]
     Dosage: UNK
  2. PROTONIX [Concomitant]
     Dosage: UNK
  3. KLONOPIN [Concomitant]
     Dosage: UNK
  4. MORPHINE [Concomitant]
     Dosage: UNK
  5. ZOLOFT [Concomitant]
     Dosage: UNK
  6. METHYLPHENIDATE [Concomitant]
     Dosage: UNK
  7. FLONASE [Concomitant]
     Dosage: UNK
  8. IBUPROFEN [Concomitant]
     Dosage: UNK
  9. LYRICA [Suspect]
     Indication: FIBROMYALGIA
     Dosage: 150 MG, 3X/DAY
     Route: 048
     Dates: start: 20110531, end: 20110613
  10. DEPO-TESTOSTERONE [Concomitant]
     Dosage: UNK
  11. OXYCODONE [Concomitant]
     Dosage: UNK
  12. LAMICTAL [Concomitant]
     Dosage: UNK

REACTIONS (1)
  - DERMATITIS BULLOUS [None]
